FAERS Safety Report 21689490 (Version 1)
Quarter: 2022Q4

REPORT INFORMATION
  Report Type: Report from Study
  Country: US (occurrence: US)
  Receive Date: 20221206
  Receipt Date: 20221206
  Transmission Date: 20230113
  Serious: Yes (Life-Threatening, Hospitalization, Other)
  Sender: FDA-Public Use
  Company Number: US-BRISTOL-MYERS SQUIBB COMPANY-2022-077789

PATIENT
  Age: 58 Year
  Sex: Male
  Weight: 90.5 kg

DRUGS (1)
  1. TRIAMCINOLONE [Concomitant]
     Active Substance: TRIAMCINOLONE
     Indication: Psoriasis
     Dosage: 1 DF= 0.1%?DOSE AMOUNT: 1 APPLICATION?UNIT: TSP
     Route: 061
     Dates: start: 20200109

REACTIONS (2)
  - Diverticulitis [Not Recovered/Not Resolved]
  - Sepsis [Recovered/Resolved]

NARRATIVE: CASE EVENT DATE: 20220713
